FAERS Safety Report 4414384-1 (Version None)
Quarter: 2004Q2

REPORT INFORMATION
  Report Type: 
  Country: None (occurrence: None)
  Receive Date: 20040630
  Receipt Date: 20040528
  Transmission Date: 20050107
  Serious: No
  Sender: FDA-Public Use
  Company Number: 04P-163-0262445-00

PATIENT
  Age: 52 Year
  Sex: Female

DRUGS (12)
  1. HUMIRA [Suspect]
     Indication: RHEUMATOID ARTHRITIS
     Dosage: 40 MG, 1 IN 2 D, SUBCUTANEOUS
     Route: 058
     Dates: start: 20040525
  2. MECLIZINE [Concomitant]
  3. FUROSEMIDE [Concomitant]
  4. CELECOXIB [Concomitant]
  5. LOSARTAN POTASSIUM [Concomitant]
  6. RANITIDINE [Concomitant]
  7. ATORVASTATIN CALCIUM [Concomitant]
  8. POTASSIUM [Concomitant]
  9. LEFLUNOMIDE [Concomitant]
  10. BUPROPION HYDROCHLORIDE [Concomitant]
  11. MOMETASONE FUROATE [Concomitant]
  12. RISEDRONATE SODIUM [Concomitant]

REACTIONS (1)
  - SINUSITIS [None]
